FAERS Safety Report 9805592 (Version 3)
Quarter: 2014Q1

REPORT INFORMATION
  Report Type: Spontaneous
  Country: US (occurrence: US)
  Receive Date: 20140109
  Receipt Date: 20140216
  Transmission Date: 20141002
  Serious: Yes (Other)
  Sender: FDA-Public Use
  Company Number: US-009507513-1312USA012523

PATIENT
  Age: 62 Year
  Sex: Female
  Weight: 102.49 kg

DRUGS (1)
  1. PEGINTRON [Suspect]
     Indication: HEPATITIS C
     Dosage: 150 ?G/0.5 ML, QW
     Route: 058
     Dates: start: 20130710, end: 201308

REACTIONS (5)
  - Injection site infection [Unknown]
  - Injection site pain [Unknown]
  - Excoriation [Unknown]
  - Erythema [Unknown]
  - Treatment noncompliance [Unknown]
